FAERS Safety Report 25774493 (Version 1)
Quarter: 2025Q3

REPORT INFORMATION
  Report Type: Spontaneous
  Country: US (occurrence: US)
  Receive Date: 20250908
  Receipt Date: 20250908
  Transmission Date: 20251020
  Serious: No
  Sender: ALEXION PHARMACEUTICALS
  Company Number: US-AstraZeneca-CH-00943261A

PATIENT
  Age: 65 Year
  Sex: Female
  Weight: 95.238 kg

DRUGS (9)
  1. FASENRA [Suspect]
     Active Substance: BENRALIZUMAB
     Indication: Asthma
     Dosage: 30 MILLIGRAM, Q4W
     Dates: start: 20250811
  2. FASENRA [Suspect]
     Active Substance: BENRALIZUMAB
  3. ALBUTEROL [Concomitant]
     Active Substance: ALBUTEROL
     Route: 065
  4. AMLODIPINE [Concomitant]
     Active Substance: AMLODIPINE BESYLATE
     Route: 065
  5. ATORVASTATIN [Concomitant]
     Active Substance: ATORVASTATIN
     Route: 065
  6. ISOSORBIDE [Concomitant]
     Active Substance: ISOSORBIDE
     Route: 065
  7. METFORMIN [Concomitant]
     Active Substance: METFORMIN HYDROCHLORIDE
     Route: 065
  8. OMEPRAZOLE [Concomitant]
     Active Substance: OMEPRAZOLE
     Route: 065
  9. TRELEGY ELLIPTA [Concomitant]
     Active Substance: FLUTICASONE FUROATE\UMECLIDINIUM BROMIDE\VILANTEROL TRIFENATATE
     Route: 065

REACTIONS (14)
  - Dyspnoea [Recovering/Resolving]
  - Chest pain [Unknown]
  - Nasopharyngitis [Unknown]
  - Cough [Unknown]
  - Dizziness [Unknown]
  - Headache [Unknown]
  - Dysphonia [Unknown]
  - Throat irritation [Unknown]
  - Rhinorrhoea [Unknown]
  - Speech disorder [Recovering/Resolving]
  - Hypertension [Recovering/Resolving]
  - Secretion discharge [Recovering/Resolving]
  - Arthralgia [Recovering/Resolving]
  - Balance disorder [Recovering/Resolving]

NARRATIVE: CASE EVENT DATE: 20250801
